FAERS Safety Report 24732198 (Version 1)
Quarter: 2024Q4

REPORT INFORMATION
  Report Type: Spontaneous
  Country: CN (occurrence: CN)
  Receive Date: 20241213
  Receipt Date: 20241213
  Transmission Date: 20250115
  Serious: Yes (Hospitalization)
  Sender: BIO-THERA SOLUTIONS, LTD.
  Company Number: CN-Bio-Thera Solutions, Ltd.-2167042

PATIENT
  Age: 73 Year
  Sex: Male
  Weight: 48 kg

DRUGS (2)
  1. AVZIVI [Suspect]
     Active Substance: BEVACIZUMAB-TNJN
     Indication: Lung neoplasm malignant
     Dates: start: 20241019, end: 20241019
  2. SODIUM CHLORIDE [Concomitant]
     Active Substance: SODIUM CHLORIDE
     Dates: start: 20241019, end: 20241019

REACTIONS (5)
  - Platelet count decreased [Recovering/Resolving]
  - Product use issue [Unknown]
  - Decreased appetite [Unknown]
  - Gingival bleeding [Unknown]
  - Coagulopathy [Recovering/Resolving]

NARRATIVE: CASE EVENT DATE: 20241019
